FAERS Safety Report 7913672-1 (Version None)
Quarter: 2011Q4

REPORT INFORMATION
  Report Type: 
  Country: None (occurrence: None)
  Receive Date: 20111115
  Receipt Date: 20111108
  Transmission Date: 20120403
  Serious: Yes (Life-Threatening, Hospitalization)
  Sender: FDA-Public Use
  Company Number: US-CELGENEUS-163-21880-11111259

PATIENT
  Sex: Male

DRUGS (15)
  1. REVLIMID [Suspect]
     Dosage: 5 MILLIGRAM
     Route: 048
     Dates: start: 20110101
  2. OMEPRAZOLE [Concomitant]
     Dosage: 50 MICROGRAM
     Route: 065
  3. REVLIMID [Suspect]
     Dosage: 10 MILLIGRAM
     Route: 048
     Dates: start: 20110901
  4. LORAZEPAM [Concomitant]
     Dosage: 50 MICROGRAM
     Route: 065
  5. REVLIMID [Suspect]
     Dosage: 5 MILLIGRAM
     Route: 048
     Dates: start: 20100401
  6. REVLIMID [Suspect]
     Dosage: 15 MILLIGRAM
     Route: 048
     Dates: start: 20100701
  7. TOPROL-XL [Concomitant]
     Dosage: 25 MILLIGRAM
     Route: 065
  8. REVLIMID [Suspect]
     Indication: MULTIPLE MYELOMA
     Dosage: 25 MILLIGRAM
     Route: 048
     Dates: start: 20090701
  9. GABAPENTIN [Concomitant]
     Dosage: 300 MILLIGRAM
     Route: 065
  10. OMEPRAZOLE [Concomitant]
     Dosage: 20 MILLIGRAM
     Route: 065
  11. FENTANYL [Concomitant]
     Dosage: 50 MICROGRAM
     Route: 065
  12. LORAZEPAM [Concomitant]
     Dosage: .5 MILLIGRAM
     Route: 065
  13. TOPROL-XL [Concomitant]
     Dosage: 50 MICROGRAM
     Route: 065
  14. REVLIMID [Suspect]
     Dosage: 10 MILLIGRAM
     Route: 048
     Dates: start: 20100501
  15. FENTANYL [Concomitant]
     Route: 065

REACTIONS (1)
  - RENAL FAILURE [None]
